FAERS Safety Report 6495090-9 (Version None)
Quarter: 2009Q4

REPORT INFORMATION
  Report Type: 
  Country: None (occurrence: None)
  Receive Date: 20091214
  Receipt Date: 20090428
  Transmission Date: 20100525
  Serious: No
  Sender: FDA-Public Use
  Company Number: US-BRISTOL-MYERS SQUIBB COMPANY-14606115

PATIENT
  Age: 23 Year
  Sex: Male

DRUGS (1)
  1. ABILIFY [Suspect]
     Dosage: 10 MG TAKEN TWICE

REACTIONS (1)
  - AKATHISIA [None]
